FAERS Safety Report 15705330 (Version 3)
Quarter: 2019Q1

REPORT INFORMATION
  Report Type: Spontaneous
  Country: TR (occurrence: TR)
  Receive Date: 20181210
  Receipt Date: 20190103
  Transmission Date: 20190417
  Serious: Yes (Other)
  Sender: FDA-Public Use
  Company Number: TR-PFIZER INC-2018500543

PATIENT
  Age: 2 Month
  Sex: Female

DRUGS (4)
  1. BIOGAIA [Concomitant]
     Active Substance: LACTOBACILLUS REUTERI
     Dosage: 5 DROPS, DAILY
  2. TRIFLUCAN [Suspect]
     Active Substance: FLUCONAZOLE
     Indication: INFECTION
     Dosage: 6 ML, SINGLE (FIRST DAY)
     Route: 048
     Dates: start: 20181129, end: 20181129
  3. TRIFLUCAN [Suspect]
     Active Substance: FLUCONAZOLE
     Indication: ORAL CANDIDIASIS
     Dosage: 3 ML, UNK
     Route: 048
     Dates: start: 20181130, end: 2018
  4. VITAMIN D [Concomitant]
     Active Substance: CHOLECALCIFEROL
     Dosage: 1 DROP, DAILY

REACTIONS (10)
  - Presyncope [Recovered/Resolved]
  - Asthenia [Recovered/Resolved]
  - Cyanosis [Recovered/Resolved]
  - Somnolence [Recovered/Resolved]
  - Dysphagia [Recovered/Resolved]
  - Product use complaint [Recovered/Resolved]
  - Product dose omission [Recovered/Resolved]
  - Vomiting [Recovered/Resolved]
  - Dyspnoea [Recovered/Resolved]
  - Sleep disorder [Recovered/Resolved]

NARRATIVE: CASE EVENT DATE: 2018
